FAERS Safety Report 15049510 (Version 2)
Quarter: 2019Q3

REPORT INFORMATION
  Report Type: Spontaneous
  Country: CA (occurrence: CA)
  Receive Date: 20180622
  Receipt Date: 20190702
  Transmission Date: 20191004
  Serious: Yes (Other)
  Sender: FDA-Public Use
  Company Number: CA-TEVA-2018-CA-909725

PATIENT
  Age: 59 Year
  Sex: Female
  Weight: 68.1 kg

DRUGS (7)
  1. FISH OIL [Concomitant]
     Active Substance: FISH OIL
  2. GABAPENTIN. [Suspect]
     Active Substance: GABAPENTIN
     Indication: SCIATICA
     Dosage: 400 MILLIGRAM DAILY;
     Route: 048
  3. COENZYME Q10 [Concomitant]
     Active Substance: UBIDECARENONE
  4. ARTHROTEC 50 [Concomitant]
  5. MAGNESIUM [Concomitant]
     Active Substance: MAGNESIUM
  6. VITAMIN D [Concomitant]
     Active Substance: VITAMIN D NOS
  7. CALCIUM [Concomitant]
     Active Substance: CALCIUM

REACTIONS (3)
  - Product use in unapproved indication [Recovering/Resolving]
  - Muscle spasms [Recovering/Resolving]
  - Muscle tightness [Recovering/Resolving]
